FAERS Safety Report 15384382 (Version 4)
Quarter: 2018Q4

REPORT INFORMATION
  Report Type: Report from Study
  Country: None (occurrence: US)
  Receive Date: 20180914
  Receipt Date: 20181005
  Transmission Date: 20190204
  Serious: Yes (Hospitalization, Other)
  Sender: FDA-Public Use
  Company Number: US-ABBVIE-18K-163-2480801-00

PATIENT
  Age: 80 Year
  Sex: Female
  Weight: 76.27 kg

DRUGS (10)
  1. HUMIRA [Suspect]
     Active Substance: ADALIMUMAB
     Indication: RHEUMATOID ARTHRITIS
     Dosage: DAY 15
     Route: 058
     Dates: start: 20180907, end: 20180907
  2. DICYCLOMINE [Concomitant]
     Active Substance: DICYCLOMINE HYDROCHLORIDE
     Indication: ABDOMINAL PAIN
  3. HUMIRA [Suspect]
     Active Substance: ADALIMUMAB
     Route: 058
     Dates: start: 2018
  4. HUMIRA [Suspect]
     Active Substance: ADALIMUMAB
     Indication: CROHN^S DISEASE
     Dosage: DAY 1
     Route: 058
     Dates: start: 20180824, end: 20180824
  5. MESALAMINE. [Concomitant]
     Active Substance: MESALAMINE
     Indication: CROHN^S DISEASE
  6. PREDNISONE. [Concomitant]
     Active Substance: PREDNISONE
     Indication: CROHN^S DISEASE
  7. AMLODIPINE [Concomitant]
     Active Substance: AMLODIPINE BESYLATE
     Indication: HYPERTENSION
  8. HUMIRA [Suspect]
     Active Substance: ADALIMUMAB
     Route: 058
     Dates: start: 20180926, end: 201809
  9. SIMVASTATIN. [Concomitant]
     Active Substance: SIMVASTATIN
     Indication: BLOOD CHOLESTEROL INCREASED
  10. METOPROLOL. [Concomitant]
     Active Substance: METOPROLOL
     Indication: HYPERTENSION

REACTIONS (8)
  - Asthenia [Not Recovered/Not Resolved]
  - Blood magnesium decreased [Recovering/Resolving]
  - Blood potassium decreased [Not Recovered/Not Resolved]
  - Pulmonary embolism [Unknown]
  - Platelet count decreased [Unknown]
  - Pneumonia [Recovered/Resolved]
  - Supraventricular tachycardia [Recovered/Resolved]
  - Haemoglobin decreased [Recovering/Resolving]

NARRATIVE: CASE EVENT DATE: 20180824
